FAERS Safety Report 10098653 (Version 3)
Quarter: 2014Q4

REPORT INFORMATION
  Report Type: Spontaneous
  Country: IL (occurrence: IL)
  Receive Date: 20140423
  Receipt Date: 20141114
  Transmission Date: 20150528
  Serious: Yes (Hospitalization, Other)
  Sender: FDA-Public Use
  Company Number: IL-NOVOPROD-400736

PATIENT
  Age: 75 Year
  Sex: Female

DRUGS (4)
  1. AMARYL [Concomitant]
     Active Substance: GLIMEPIRIDE
     Dosage: UNK
     Route: 065
  2. VICTOZA [Suspect]
     Active Substance: LIRAGLUTIDE
     Dosage: 1.2 MG
     Route: 065
  3. GLUCOMIN [Concomitant]
     Dosage: X2/DAY
     Route: 065
  4. VICTOZA [Suspect]
     Active Substance: LIRAGLUTIDE
     Indication: TYPE 2 DIABETES MELLITUS
     Dosage: 0.6 MG, QD
     Route: 065
     Dates: start: 20140212

REACTIONS (5)
  - Hepatic steatosis [Unknown]
  - Urinary tract infection [Unknown]
  - Hepatomegaly [Unknown]
  - Balance disorder [Not Recovered/Not Resolved]
  - Sepsis [Unknown]
